FAERS Safety Report 7229564-X (Version None)
Quarter: 2011Q1

REPORT INFORMATION
  Report Type: 
  Country: None (occurrence: None)
  Receive Date: 20110117
  Receipt Date: 20101101
  Transmission Date: 20110831
  Serious: No
  Sender: FDA-Public Use
  Company Number: US-TYCO HEALTHCARE/MALLINCKRODT-T201002199

PATIENT
  Sex: Female

DRUGS (6)
  1. NAPROXEN [Concomitant]
     Dosage: UNK
  2. ACIPHEX [Concomitant]
     Dosage: UNK
  3. OPTIRAY 350 [Suspect]
     Indication: COMPUTERISED TOMOGRAM ABDOMEN
     Dosage: 100 ML, SINGLE
     Route: 042
     Dates: start: 20101027, end: 20101027
  4. VENLAFINE [Concomitant]
     Dosage: UNK
  5. SYMBICORT [Concomitant]
     Dosage: UNK
  6. ASTELIN [Concomitant]
     Dosage: UNK

REACTIONS (2)
  - LIP OEDEMA [None]
  - THROAT IRRITATION [None]
